FAERS Safety Report 14430371 (Version 1)
Quarter: 2018Q1

REPORT INFORMATION
  Report Type: Spontaneous
  Country: RU (occurrence: RU)
  Receive Date: 20180124
  Receipt Date: 20180124
  Transmission Date: 20180509
  Serious: Yes (Hospitalization)
  Sender: FDA-Public Use
  Company Number: RU-ASTRAZENECA-2018SE08499

PATIENT
  Age: 46 Year
  Sex: Male
  Weight: 90 kg

DRUGS (4)
  1. ATORIS [Concomitant]
     Active Substance: ATORVASTATIN CALCIUM
     Dates: start: 201711, end: 201801
  2. BRILINTA [Suspect]
     Active Substance: TICAGRELOR
     Indication: MYOCARDIAL INFARCTION
     Route: 048
     Dates: start: 201711, end: 201801
  3. NOLPAZA [Concomitant]
     Active Substance: PANTOPRAZOLE SODIUM
     Dates: start: 201711, end: 201801
  4. INSPRA [Concomitant]
     Active Substance: EPLERENONE
     Dates: start: 201711, end: 201801

REACTIONS (1)
  - Pulmonary oedema [Recovered/Resolved]
